FAERS Safety Report 13977520 (Version 3)
Quarter: 2017Q4

REPORT INFORMATION
  Report Type: Spontaneous
  Country: US (occurrence: US)
  Receive Date: 20170915
  Receipt Date: 20171109
  Transmission Date: 20180321
  Serious: Yes (Other)
  Sender: FDA-Public Use
  Company Number: US-TEVA-807368USA

PATIENT
  Sex: Female

DRUGS (1)
  1. AMOXICILLIN. [Suspect]
     Active Substance: AMOXICILLIN
     Indication: TOOTH INFECTION
     Dosage: 1 PILL THREE TIMES A DAY THE FIRST DAY/THEN STARTING ON DAY 2 TO TAKE 2 PILLS THREE TIMES A DAY
     Route: 065
     Dates: start: 20170825, end: 20170905

REACTIONS (6)
  - Muscular weakness [Recovering/Resolving]
  - Asthenia [Recovering/Resolving]
  - Neuromyopathy [Unknown]
  - Insomnia [Recovering/Resolving]
  - Palpitations [Recovering/Resolving]
  - Drug hypersensitivity [Unknown]

NARRATIVE: CASE EVENT DATE: 20170825
